FAERS Safety Report 14739585 (Version 1)
Quarter: 2018Q2

REPORT INFORMATION
  Report Type: Spontaneous
  Country: GB (occurrence: US)
  Receive Date: 20180410
  Receipt Date: 20180410
  Transmission Date: 20180711
  Serious: No
  Sender: FDA-Public Use
  Company Number: GB-AUROBINDO-AUR-APU-2018-012820

PATIENT
  Age: 80 Year
  Sex: Male

DRUGS (1)
  1. GUAIFENESIN AND DEXTROMETHORPHAN HYDROBROMIDE 1200MG/60MG [Suspect]
     Active Substance: DEXTROMETHORPHAN HYDROBROMIDE\GUAIFENESIN
     Indication: COUGH
     Dosage: UNK, TWO TIMES A DAY, PV COLD AND FLU NIGHT TIME RELEIF
     Dates: start: 20180305, end: 20180305

REACTIONS (1)
  - Headache [Unknown]
